FAERS Safety Report 7883698-5 (Version None)
Quarter: 2011Q4

REPORT INFORMATION
  Report Type: 
  Country: None (occurrence: None)
  Receive Date: 20111102
  Receipt Date: 20111021
  Transmission Date: 20120403
  Serious: Yes (Hospitalization, Other)
  Sender: FDA-Public Use
  Company Number: BR-NOVOPROD-338347

PATIENT

DRUGS (11)
  1. CAPTOPRIL [Concomitant]
  2. NOVORAPID FLEXPEN [Suspect]
     Indication: DIABETES MELLITUS
     Dosage: UNK
     Route: 065
     Dates: start: 20080701
  3. NOVOLIN N [Suspect]
     Dosage: UNK
     Route: 065
     Dates: start: 20070901
  4. DIGOXIN [Concomitant]
  5. FUROSEMIDE [Concomitant]
  6. GALVUS [Concomitant]
     Indication: DIABETES MELLITUS
     Dosage: TWICE A DAY
     Route: 065
     Dates: start: 20091201
  7. NOVOLIN N [Suspect]
     Indication: DIABETES MELLITUS
     Dosage: UNK
     Route: 065
     Dates: start: 20040101
  8. CARVEDILOL [Concomitant]
  9. INSULIN GLARGINE [Concomitant]
     Indication: DIABETES MELLITUS
  10. NOVOLIN R [Suspect]
     Indication: DIABETES MELLITUS
     Dosage: UNK
     Route: 065
     Dates: start: 20070901
  11. SPIRONOLACTONE [Concomitant]

REACTIONS (5)
  - CRANIOCEREBRAL INJURY [None]
  - HYPOGLYCAEMIA [None]
  - HYPERGLYCAEMIA [None]
  - HYPOGLYCAEMIC UNCONSCIOUSNESS [None]
  - DIABETIC KETOACIDOSIS [None]
